FAERS Safety Report 23255992 (Version 1)
Quarter: 2023Q4

REPORT INFORMATION
  Report Type: Spontaneous
  Country: US (occurrence: US)
  Receive Date: 20231204
  Receipt Date: 20231204
  Transmission Date: 20240110
  Serious: Yes (Other)
  Sender: FDA-Public Use
  Company Number: US-drreddys-SPO/USA/23/0187702

PATIENT
  Age: 71 Year
  Sex: Male

DRUGS (6)
  1. TOBRAMYCIN [Suspect]
     Active Substance: TOBRAMYCIN
     Indication: Arthritis infective
     Dosage: STANDARD DOSES WAS PLACED
  2. TOBRAMYCIN [Suspect]
     Active Substance: TOBRAMYCIN
     Indication: Staphylococcal infection
  3. GENTAMICIN [Suspect]
     Active Substance: GENTAMICIN
     Indication: Arthritis infective
     Dosage: STANDARD DOSES WAS PLACED
  4. GENTAMICIN [Suspect]
     Active Substance: GENTAMICIN
     Indication: Staphylococcal infection
  5. VANCOMYCIN [Concomitant]
     Active Substance: VANCOMYCIN
     Indication: Staphylococcal infection
     Dosage: STANDARD DOSES WAS PLACED
  6. VANCOMYCIN [Concomitant]
     Active Substance: VANCOMYCIN
     Indication: Arthritis infective

REACTIONS (2)
  - Toxicity to various agents [Recovering/Resolving]
  - Acute kidney injury [Recovering/Resolving]
